FAERS Safety Report 7201733-4 (Version None)
Quarter: 2010Q4

REPORT INFORMATION
  Report Type: 
  Country: None (occurrence: None)
  Receive Date: 20101229
  Receipt Date: 20101215
  Transmission Date: 20110411
  Serious: Yes (Other)
  Sender: FDA-Public Use
  Company Number: JP-ROCHE-749535

PATIENT
  Age: 60 Year
  Sex: Male

DRUGS (5)
  1. AVASTIN [Suspect]
     Indication: COLON CANCER RECURRENT
     Route: 041
     Dates: start: 20090401
  2. 5-FU [Concomitant]
     Dosage: DOSE FORM: INTRAVENOUS DRIP
     Route: 041
     Dates: start: 20090401
  3. 5-FU [Concomitant]
     Dosage: DOSE FORM: INTRAVENOUS BOLUS
     Route: 041
     Dates: start: 20090401
  4. LEVOFOLINATE [Concomitant]
     Route: 041
     Dates: start: 20090401
  5. IRINOTECAN HYDROCHLORIDE [Concomitant]
     Route: 041
     Dates: start: 20090401

REACTIONS (1)
  - INTERSTITIAL LUNG DISEASE [None]
